FAERS Safety Report 23759292 (Version 1)
Quarter: 2024Q2

REPORT INFORMATION
  Report Type: Spontaneous
  Country: US (occurrence: None)
  Receive Date: 20240418
  Receipt Date: 20240418
  Transmission Date: 20240716
  Serious: No
  Sender: FDA-Public Use
  Company Number: US-ROCHE-3390455

PATIENT
  Sex: Female

DRUGS (12)
  1. ESBRIET [Suspect]
     Active Substance: PIRFENIDONE
     Indication: Idiopathic pulmonary fibrosis
     Dosage: TAKE 1 TABLET 3 TIMES DAILY 1 WEEK, THEN 2 TABLET 3 TIMES DAILY 1 WEEK, THEN 3 TABLETS 3 TIMES DAILY
     Route: 065
     Dates: start: 20230711
  2. DRONABINOL [Concomitant]
     Active Substance: DRONABINOL
  3. LOPERAMIDE HYDROCHLORIDE [Concomitant]
     Active Substance: LOPERAMIDE HYDROCHLORIDE
  4. ASPIRIN [Concomitant]
     Active Substance: ASPIRIN
  5. CALCIUM [Concomitant]
     Active Substance: CALCIUM
  6. GEMFIBROZIL [Concomitant]
     Active Substance: GEMFIBROZIL
  7. GUAIFENESIN [Concomitant]
     Active Substance: GUAIFENESIN
     Dosage: SOL 100-10 MG
  8. JANUVIA [Concomitant]
     Active Substance: SITAGLIPTIN PHOSPHATE
  9. VITAMINS [Concomitant]
     Active Substance: VITAMINS
  10. NAPROXEN [Concomitant]
     Active Substance: NAPROXEN
  11. SIMPLY SALINE [Concomitant]
     Dosage: AER 0.9%
  12. VITAMIN B12 [Concomitant]
     Active Substance: CYANOCOBALAMIN
     Dosage: 500 MCG

REACTIONS (10)
  - Productive cough [Not Recovered/Not Resolved]
  - Dyspnoea exertional [Not Recovered/Not Resolved]
  - Wheezing [Not Recovered/Not Resolved]
  - Hypersomnia [Not Recovered/Not Resolved]
  - Feeling of despair [Not Recovered/Not Resolved]
  - Fatigue [Not Recovered/Not Resolved]
  - Decreased appetite [Not Recovered/Not Resolved]
  - Weight decreased [Not Recovered/Not Resolved]
  - Diarrhoea [Not Recovered/Not Resolved]
  - Dizziness [Not Recovered/Not Resolved]
